FAERS Safety Report 6253684-X (Version None)
Quarter: 2009Q2

REPORT INFORMATION
  Report Type: 
  Country: None (occurrence: None)
  Receive Date: 20090630
  Receipt Date: 20090623
  Transmission Date: 20091009
  Serious: Yes (Death, Hospitalization)
  Sender: FDA-Public Use
  Company Number: 2009US001992

PATIENT
  Age: 60 Year
  Sex: Male
  Weight: 72.6 kg

DRUGS (22)
  1. PROGRAF [Suspect]
     Indication: RENAL TRANSPLANT
     Dosage: ORAL; 5 MG, BID, 7 MG, BID
     Dates: start: 20081223, end: 20090207
  2. PROGRAF [Suspect]
     Indication: RENAL TRANSPLANT
     Dosage: ORAL; 5 MG, BID, 7 MG, BID
     Dates: start: 20090210
  3. PROGRAF [Suspect]
     Indication: RENAL TRANSPLANT
     Dosage: ORAL; 5 MG, BID, 7 MG, BID
     Dates: start: 20090213
  4. ANOTHER MANUFACTURER'S PHASE 2 STUDY DRUG [Suspect]
     Indication: KIDNEY TRANSPLANT REJECTION
     Dosage: 15 MG, BID, ORAL
     Route: 048
     Dates: start: 20081109, end: 20081226
  5. MYCOPHENOLATE MOFETIL [Suspect]
     Indication: DRUG USE FOR UNKNOWN INDICATION
     Dosage: 500 MG, BID, ORAL; 250 MG, BID
     Route: 048
     Dates: end: 20090212
  6. MYCOPHENOLATE MOFETIL [Suspect]
     Indication: DRUG USE FOR UNKNOWN INDICATION
     Dosage: 500 MG, BID, ORAL; 250 MG, BID
     Route: 048
     Dates: start: 20090212
  7. PREDNISONE TAB [Suspect]
     Indication: DRUG USE FOR UNKNOWN INDICATION
     Dosage: 15 MG, UID/QD, ORAL; 10 MG, UID/QD
     Route: 048
     Dates: end: 20090202
  8. PREDNISONE TAB [Suspect]
     Indication: DRUG USE FOR UNKNOWN INDICATION
     Dosage: 15 MG, UID/QD, ORAL; 10 MG, UID/QD
     Route: 048
     Dates: start: 20090202
  9. NORVASC [Concomitant]
  10. CLONIDINE [Concomitant]
  11. CARDURA [Concomitant]
  12. GABAPENTIN [Concomitant]
  13. HYDRALAZINE HCL [Concomitant]
  14. LOPRESSOR [Concomitant]
  15. NYSTATIN [Concomitant]
  16. SEPTRA [Concomitant]
  17. ZOCOR [Concomitant]
  18. VALCYTE [Concomitant]
  19. MINOXIDIL [Concomitant]
  20. MAGNESIUM OXIDE (MAGNESIUM OXIDE) [Concomitant]
  21. LANTUS [Concomitant]
  22. LASIX [Concomitant]

REACTIONS (8)
  - ANAEMIA [None]
  - BLOOD CULTURE POSITIVE [None]
  - CARDIAC ARREST [None]
  - CATHETER RELATED INFECTION [None]
  - ELECTROMECHANICAL DISSOCIATION [None]
  - PNEUMONIA RESPIRATORY SYNCYTIAL VIRAL [None]
  - PNEUMONIA VIRAL [None]
  - STAPHYLOCOCCAL BACTERAEMIA [None]
